FAERS Safety Report 19463838 (Version 1)
Quarter: 2021Q2

REPORT INFORMATION
  Report Type: Spontaneous
  Country: US (occurrence: US)
  Receive Date: 20210625
  Receipt Date: 20210625
  Transmission Date: 20210717
  Serious: No
  Sender: FDA-Public Use
  Company Number: US-SA-2021SA203061

PATIENT
  Age: 60 Year
  Sex: Female

DRUGS (1)
  1. TOUJEO MAX [Suspect]
     Active Substance: INSULIN GLARGINE
     Indication: TYPE 2 DIABETES MELLITUS
     Dosage: 70 IU, QD
     Route: 065

REACTIONS (3)
  - Frustration tolerance decreased [Unknown]
  - Product dose omission issue [Unknown]
  - Depressed mood [Unknown]
